FAERS Safety Report 7940481-X (Version None)
Quarter: 2011Q4

REPORT INFORMATION
  Report Type: 
  Country: None (occurrence: None)
  Receive Date: 20111128
  Receipt Date: 20111123
  Transmission Date: 20120403
  Serious: No
  Sender: FDA-Public Use
  Company Number: US-PFIZER INC-2011286834

PATIENT
  Sex: Female

DRUGS (2)
  1. XANAX [Suspect]
     Indication: SLEEP DISORDER
     Dosage: 0.5 MG, UNK
     Dates: start: 20010101
  2. ALPRAZOLAM [Suspect]
     Dosage: 0.5 MG, UNK

REACTIONS (1)
  - DYSGEUSIA [None]
